FAERS Safety Report 6636256-4 (Version None)
Quarter: 2010Q1

REPORT INFORMATION
  Report Type: 
  Country: None (occurrence: None)
  Receive Date: 20100310
  Receipt Date: 20100302
  Transmission Date: 20100710
  Serious: Yes (Other)
  Sender: FDA-Public Use
  Company Number: 2009SP042363

PATIENT
  Sex: Male

DRUGS (2)
  1. REMERON [Suspect]
     Indication: DRUG USE FOR UNKNOWN INDICATION
     Dosage: PO
     Route: 048
  2. MEILAX (CON.) [Concomitant]

REACTIONS (4)
  - DIZZINESS [None]
  - FALL [None]
  - NO THERAPEUTIC RESPONSE [None]
  - ROAD TRAFFIC ACCIDENT [None]
